FAERS Safety Report 9111899 (Version 1)
Quarter: 2013Q1

REPORT INFORMATION
  Report Type: Spontaneous
  Country: US (occurrence: US)
  Receive Date: 20130219
  Receipt Date: 20130219
  Transmission Date: 20140127
  Serious: No
  Sender: FDA-Public Use
  Company Number: US-BRISTOL-MYERS SQUIBB COMPANY-17006370

PATIENT
  Age: 48 Year
  Sex: Male
  Weight: 68.03 kg

DRUGS (5)
  1. ORENCIA [Suspect]
     Indication: RHEUMATOID ARTHRITIS
     Dosage: 1DF =125MG/ML?STRENGTH:ORENCIA 125MG/ML
     Route: 058
     Dates: start: 20120108
  2. CLONAZEPAM [Concomitant]
  3. LEFLUNOMIDE [Concomitant]
  4. OXYCONTIN [Concomitant]
  5. SULFASALAZINE [Concomitant]

REACTIONS (7)
  - Pain [Unknown]
  - Local swelling [Unknown]
  - Hypoaesthesia [Unknown]
  - Fatigue [Unknown]
  - Asthenia [Unknown]
  - Vitamin D decreased [Unknown]
  - Headache [Unknown]
